FAERS Safety Report 19768438 (Version 1)
Quarter: 2021Q3

REPORT INFORMATION
  Report Type: Spontaneous
  Country: US (occurrence: US)
  Receive Date: 20210830
  Receipt Date: 20210830
  Transmission Date: 20211014
  Serious: No
  Sender: FDA-Public Use
  Company Number: US-ABBVIE-21K-163-3997653-00

PATIENT
  Age: 48 Year
  Sex: Female

DRUGS (2)
  1. ORIAHNN [Suspect]
     Active Substance: ELAGOLIX SODIUM\ESTRADIOL\NORETHINDRONE
     Indication: UTERINE LEIOMYOMA
     Route: 048
  2. ORIAHNN [Suspect]
     Active Substance: ELAGOLIX SODIUM\ESTRADIOL\NORETHINDRONE
     Indication: UTERINE LEIOMYOMA
     Route: 048

REACTIONS (5)
  - Gait inability [Recovered/Resolved]
  - Uterine leiomyoma [Not Recovered/Not Resolved]
  - Abdominal pain [Unknown]
  - Constipation [Recovered/Resolved]
  - Unevaluable event [Recovered/Resolved]
